FAERS Safety Report 22216442 (Version 1)
Quarter: 2023Q2

REPORT INFORMATION
  Report Type: Spontaneous
  Country: MA (occurrence: MA)
  Receive Date: 20230417
  Receipt Date: 20230417
  Transmission Date: 20230722
  Serious: Yes (Hospitalization, Other)
  Sender: FDA-Public Use
  Company Number: MA-MACLEODS PHARMACEUTICALS US LTD-MAC2023040772

PATIENT

DRUGS (2)
  1. OLANZAPINE [Suspect]
     Active Substance: OLANZAPINE
     Indication: Anger
     Dosage: 5 MILLIGRAM, QD
     Route: 065
  2. FLUOXETINE [Suspect]
     Active Substance: FLUOXETINE HYDROCHLORIDE
     Indication: Anger
     Dosage: 20 MILLIGRAM, QD
     Route: 065

REACTIONS (2)
  - Lung disorder [Recovering/Resolving]
  - Pulmonary embolism [Recovering/Resolving]
